FAERS Safety Report 7315342-X (Version None)
Quarter: 2011Q1

REPORT INFORMATION
  Report Type: 
  Country: None (occurrence: None)
  Receive Date: 20110225
  Receipt Date: 20110208
  Transmission Date: 20110831
  Serious: Yes (Hospitalization)
  Sender: FDA-Public Use
  Company Number: US-BAYER-201036630NA

PATIENT
  Sex: Female

DRUGS (2)
  1. LUPRON [Concomitant]
     Indication: CONTRACEPTION
  2. YASMIN [Suspect]
     Indication: PRODUCT USED FOR UNKNOWN INDICATION
     Route: 048
     Dates: start: 20050101, end: 20071227

REACTIONS (4)
  - PALPITATIONS [None]
  - PAIN [None]
  - DEEP VEIN THROMBOSIS [None]
  - PULMONARY EMBOLISM [None]
